FAERS Safety Report 24542338 (Version 1)
Quarter: 2024Q4

REPORT INFORMATION
  Report Type: Report from Study
  Country: CA (occurrence: CA)
  Receive Date: 20241023
  Receipt Date: 20241023
  Transmission Date: 20250114
  Serious: Yes (Other)
  Sender: ABBVIE
  Company Number: CA-ABBVIE-5969901

PATIENT
  Age: 74 Year
  Sex: Male

DRUGS (1)
  1. SKYRIZI [Suspect]
     Active Substance: RISANKIZUMAB-RZAA
     Indication: Crohn^s disease
     Route: 058
     Dates: start: 20240730

REACTIONS (6)
  - Surgery [Unknown]
  - Frequent bowel movements [Not Recovered/Not Resolved]
  - Neuralgia [Unknown]
  - Cervical spinal stenosis [Unknown]
  - Gastrointestinal disorder [Not Recovered/Not Resolved]
  - Prostatic disorder [Recovering/Resolving]

NARRATIVE: CASE EVENT DATE: 20240101
